FAERS Safety Report 7303449-2 (Version None)
Quarter: 2011Q1

REPORT INFORMATION
  Report Type: 
  Country: None (occurrence: None)
  Receive Date: 20110221
  Receipt Date: 20100930
  Transmission Date: 20110831
  Serious: Yes (Other)
  Sender: FDA-Public Use
  Company Number: US-BAYER-200937031NA

PATIENT
  Sex: Female
  Weight: 49 kg

DRUGS (3)
  1. YASMIN [Suspect]
     Indication: CONTRACEPTION
     Dosage: UNK
     Route: 048
     Dates: start: 20030901, end: 20031201
  2. YASMIN [Suspect]
     Indication: ENDOMETRIOSIS
  3. ACCUTANE [Concomitant]
     Indication: ACNE
     Dosage: 40 MG, UNK
     Route: 048
     Dates: start: 20030609, end: 20031201

REACTIONS (4)
  - PULMONARY EMBOLISM [None]
  - THROMBOSIS [None]
  - PAIN [None]
  - DEEP VEIN THROMBOSIS [None]
